FAERS Safety Report 20115678 (Version 1)
Quarter: 2021Q4

REPORT INFORMATION
  Report Type: Other
  Country: US (occurrence: None)
  Receive Date: 20211126
  Receipt Date: 20211126
  Transmission Date: 20220303
  Serious: Yes (Death, Other)
  Sender: FDA-Public Use
  Company Number: US-ROCHE-2960287

PATIENT

DRUGS (7)
  1. ATEZOLIZUMAB [Suspect]
     Active Substance: ATEZOLIZUMAB
     Indication: Neoplasm malignant
     Route: 065
  2. NIVOLUMAB [Suspect]
     Active Substance: NIVOLUMAB
     Indication: Neoplasm malignant
     Route: 065
  3. PEMBROLIZUMAB [Suspect]
     Active Substance: PEMBROLIZUMAB
     Indication: Neoplasm malignant
     Route: 065
  4. IPILIMUMAB [Suspect]
     Active Substance: IPILIMUMAB
     Indication: Neoplasm malignant
     Route: 065
  5. AVELUMAB [Suspect]
     Active Substance: AVELUMAB
     Indication: Neoplasm malignant
     Route: 065
  6. DURVALUMAB [Suspect]
     Active Substance: DURVALUMAB
     Indication: Neoplasm malignant
     Route: 065
  7. CEMIPLIMAB [Suspect]
     Active Substance: CEMIPLIMAB
     Indication: Neoplasm malignant
     Route: 065

REACTIONS (3)
  - Myocarditis [Fatal]
  - Pericardial effusion [Unknown]
  - Cardiac failure [Unknown]
